FAERS Safety Report 5389935-3 (Version None)
Quarter: 2007Q3

REPORT INFORMATION
  Report Type: 
  Country: None (occurrence: None)
  Receive Date: 20070716
  Receipt Date: 20070716
  Transmission Date: 20080115
  Serious: Yes (Other)
  Sender: FDA-Public Use
  Company Number: None

PATIENT
  Age: 43 Year
  Sex: Female
  Weight: 81.6475 kg

DRUGS (1)
  1. SYNTHROID [Suspect]
     Indication: HYPOTHYROIDISM
     Dosage: 88 1X A DAY PO
     Route: 048

REACTIONS (10)
  - BLOOD TRIGLYCERIDES ABNORMAL [None]
  - CHEST PAIN [None]
  - DRY SKIN [None]
  - FATIGUE [None]
  - HEADACHE [None]
  - IMMUNE SYSTEM DISORDER [None]
  - INSOMNIA [None]
  - MOOD ALTERED [None]
  - PYREXIA [None]
  - WEIGHT INCREASED [None]
